FAERS Safety Report 7617001-2 (Version None)
Quarter: 2011Q3

REPORT INFORMATION
  Report Type: 
  Country: None (occurrence: None)
  Receive Date: 20110718
  Receipt Date: 20080402
  Transmission Date: 20111222
  Serious: No
  Sender: FDA-Public Use
  Company Number: 2008BI009005

PATIENT
  Sex: Female

DRUGS (4)
  1. TYSABRI [Suspect]
     Indication: MULTIPLE SCLEROSIS
     Route: 042
     Dates: start: 20070712, end: 20071227
  2. AVONEX [Concomitant]
     Route: 030
  3. AVONEX [Concomitant]
     Indication: MULTIPLE SCLEROSIS
     Route: 030
     Dates: start: 20100401
  4. TYSABRI [Suspect]
     Route: 042
     Dates: start: 20080404, end: 20080630

REACTIONS (4)
  - HEMIPARESIS [None]
  - GAIT DISTURBANCE [None]
  - SPEECH DISORDER [None]
  - HYPOAESTHESIA [None]
